FAERS Safety Report 18156569 (Version 1)
Quarter: 2020Q3

REPORT INFORMATION
  Report Type: Spontaneous
  Country: US (occurrence: US)
  Receive Date: 20200816
  Receipt Date: 20200816
  Transmission Date: 20201103
  Serious: Yes (Hospitalization)
  Sender: FDA-Public Use
  Company Number: None

PATIENT
  Age: 77 Year
  Sex: Female
  Weight: 49.5 kg

DRUGS (11)
  1. BIOTENE DRY MOUTH [Concomitant]
  2. IBUPROFEN 200MG [Concomitant]
     Active Substance: IBUPROFEN
  3. MECLIZINE 25MG [Concomitant]
  4. PANTOPRAZOLE 40MG [Concomitant]
     Active Substance: PANTOPRAZOLE SODIUM
  5. FLONASE ALLERGY 50MCG/ACT [Concomitant]
  6. FOLIC ACID 1MG [Concomitant]
     Active Substance: FOLIC ACID
  7. SULFASALAZINE 500MG [Concomitant]
     Active Substance: SULFASALAZINE
  8. LEVOTHYROXINE 125MCG [Concomitant]
     Active Substance: LEVOTHYROXINE SODIUM
  9. ONDANSETRON 4MG [Concomitant]
     Active Substance: ONDANSETRON
  10. CAPECITABINE. [Suspect]
     Active Substance: CAPECITABINE
     Indication: BREAST CANCER FEMALE
     Route: 048
     Dates: start: 20191210
  11. LORATADINE 10MG [Concomitant]
     Active Substance: LORATADINE

REACTIONS (4)
  - Vomiting [None]
  - Headache [None]
  - Dehydration [None]
  - Dizziness [None]

NARRATIVE: CASE EVENT DATE: 20200812
